FAERS Safety Report 21851801 (Version 1)
Quarter: 2023Q1

REPORT INFORMATION
  Report Type: Spontaneous
  Country: DE (occurrence: DE)
  Receive Date: 20230112
  Receipt Date: 20230112
  Transmission Date: 20230417
  Serious: Yes (Death)
  Sender: FDA-Public Use
  Company Number: DE-TEVA-2023-DE-2844183

PATIENT
  Age: 60 Year
  Sex: Female

DRUGS (1)
  1. FENTANYL [Suspect]
     Active Substance: FENTANYL
     Indication: Product used for unknown indication
     Dosage: DOSAGE: 1000 MICROG/H
     Route: 062

REACTIONS (1)
  - Toxicity to various agents [Fatal]
